FAERS Safety Report 7051336-X (Version None)
Quarter: 2010Q4

REPORT INFORMATION
  Report Type: 
  Country: None (occurrence: None)
  Receive Date: 20101018
  Receipt Date: 20101018
  Transmission Date: 20110411
  Serious: Yes (Other)
  Sender: FDA-Public Use
  Company Number: None

PATIENT
  Sex: Female
  Weight: 106.1417 kg

DRUGS (2)
  1. ACTOS [Suspect]
     Indication: BLOOD GLUCOSE INCREASED
     Dosage: 1 PILL 7DAY WK 1 DAILY
     Dates: start: 19980101, end: 20090101
  2. ACTOS [Suspect]
     Indication: DIABETES MELLITUS
     Dosage: 1 PILL 7DAY WK 1 DAILY
     Dates: start: 19980101, end: 20090101

REACTIONS (6)
  - ANGINA PECTORIS [None]
  - DISCOMFORT [None]
  - DYSPNOEA [None]
  - FLUID RETENTION [None]
  - SWELLING [None]
  - WEIGHT INCREASED [None]
